FAERS Safety Report 5159056-3 (Version None)
Quarter: 2006Q4

REPORT INFORMATION
  Report Type: 
  Country: None (occurrence: None)
  Receive Date: 20061128
  Receipt Date: 20061120
  Transmission Date: 20070319
  Serious: Yes (Death)
  Sender: FDA-Public Use
  Company Number: US-ROXANE LABORATORIES, INC-2006-DE-06147GD

PATIENT

DRUGS (5)
  1. ACETAMINOPHEN [Suspect]
  2. TRAZODONE HCL [Suspect]
  3. CODEINE [Suspect]
  4. FENTANYL [Suspect]
  5. FLUOXETINE [Suspect]

REACTIONS (3)
  - CARBON MONOXIDE POISONING [None]
  - COMPLETED SUICIDE [None]
  - DRUG SCREEN POSITIVE [None]
